FAERS Safety Report 6601806-0 (Version None)
Quarter: 2010Q1

REPORT INFORMATION
  Report Type: 
  Country: None (occurrence: None)
  Receive Date: 20100218
  Receipt Date: 20100202
  Transmission Date: 20100710
  Serious: Yes (Other)
  Sender: FDA-Public Use
  Company Number: DSM-2010-00151

PATIENT
  Age: 66 Year
  Sex: Male
  Weight: 75 kg

DRUGS (2)
  1. OLMESARTAN MEDOXOMIL [Suspect]
     Indication: HYPERTENSION
     Dosage: 40 MG (40 MG, 1IN 1 D), ORAL, 20 MG (20 MG, 1 IN 1 D), ORAL, 10 MG  (10 MG, 1 IN 1 D), ORAL
     Route: 048
     Dates: start: 20061221, end: 20090301
  2. OLMESARTAN MEDOXOMIL [Suspect]
     Indication: HYPERTENSION
     Dosage: 40 MG (40 MG, 1IN 1 D), ORAL, 20 MG (20 MG, 1 IN 1 D), ORAL, 10 MG  (10 MG, 1 IN 1 D), ORAL
     Route: 048
     Dates: start: 20090301

REACTIONS (2)
  - DIZZINESS [None]
  - HYPOTENSION [None]
